FAERS Safety Report 8484099-1 (Version None)
Quarter: 2012Q2

REPORT INFORMATION
  Report Type: 
  Country: None (occurrence: None)
  Receive Date: 20120627
  Receipt Date: 20120627
  Transmission Date: 20120825
  Serious: Yes (Hospitalization)
  Sender: FDA-Public Use
  Company Number: None

PATIENT
  Sex: Male
  Weight: 80 kg

DRUGS (1)
  1. INTRON A [Suspect]
     Dosage: 20 MU
     Dates: end: 20120611

REACTIONS (3)
  - IMPAIRED HEALING [None]
  - NO THERAPEUTIC RESPONSE [None]
  - CELLULITIS [None]
